FAERS Safety Report 4614718-9 (Version None)
Quarter: 2005Q2

REPORT INFORMATION
  Report Type: 
  Country: None (occurrence: None)
  Receive Date: 20050310
  Receipt Date: 20030721
  Transmission Date: 20051028
  Serious: Yes (Hospitalization)
  Sender: FDA-Public Use
  Company Number: F03200300017

PATIENT
  Age: 56 Year
  Sex: Female
  Weight: 48.0813 kg

DRUGS (10)
  1. ELOXATIN [Suspect]
     Indication: COLON CANCER
     Dosage: 85 MG/M2 Q2W - INTRAVENOUS NOS
     Route: 042
     Dates: start: 20030327, end: 20030327
  2. TEZACITABINE - SOLUTION - 150 MG/M2 [Suspect]
     Indication: COLON CANCER
     Dosage: 10 MG Q2W - SUBCUTANEOUS
     Route: 058
     Dates: start: 20030326, end: 20030326
  3. PARACETAMOL, OXYCODONE HYDROCHLORIDE [Concomitant]
  4. PAROXETINE HYDROCHLORIDE [Concomitant]
  5. ZOLPIDEM TARTRATE [Concomitant]
  6. FENTANYL [Concomitant]
  7. PROCHLORPERAZINE EDISYLATE [Concomitant]
  8. ONDANSETRON HYDROCHLORIDE [Concomitant]
  9. ACETAMINOPHEN [Concomitant]
  10. DEXAMETHASONE [Concomitant]

REACTIONS (4)
  - ABDOMINAL DISTENSION [None]
  - ABDOMINAL PAIN [None]
  - NEUTROPENIA [None]
  - SMALL INTESTINAL OBSTRUCTION [None]
